FAERS Safety Report 16551277 (Version 1)
Quarter: 2019Q3

REPORT INFORMATION
  Report Type: Spontaneous
  Country: US (occurrence: US)
  Receive Date: 20190529
  Receipt Date: 20190529
  Transmission Date: 20191004
  Serious: Yes (Hospitalization)
  Sender: FDA-Public Use
  Company Number: None

PATIENT
  Age: 25 Year
  Sex: Female

DRUGS (1)
  1. GLATIRAMER [Suspect]
     Active Substance: GLATIRAMER
     Indication: MULTIPLE SCLEROSIS
     Dosage: ?          OTHER FREQUENCY:Q MON, WEDS, FRI;?
     Route: 058
     Dates: start: 20181002

REACTIONS (7)
  - Dyspnoea [None]
  - Muscle twitching [None]
  - Chest pain [None]
  - Back pain [None]
  - Feeling abnormal [None]
  - Abdominal pain upper [None]
  - Injection site haemorrhage [None]

NARRATIVE: CASE EVENT DATE: 20190327
